FAERS Safety Report 14035424 (Version 2)
Quarter: 2017Q4

REPORT INFORMATION
  Report Type: Spontaneous
  Country: AT (occurrence: AT)
  Receive Date: 20171003
  Receipt Date: 20171020
  Transmission Date: 20180321
  Serious: Yes (Hospitalization, Other)
  Sender: FDA-Public Use
  Company Number: PHHY2017AT143499

PATIENT
  Age: 21 Year
  Sex: Female
  Weight: 50 kg

DRUGS (2)
  1. DALACIN [Suspect]
     Active Substance: CLINDAMYCIN
     Indication: STAPHYLOCOCCAL INFECTION
     Dosage: UNK
     Route: 065
  2. COSENTYX [Suspect]
     Active Substance: SECUKINUMAB
     Indication: PSORIASIS
     Dosage: 1 DF, QMO
     Route: 065
     Dates: start: 20170415, end: 20170703

REACTIONS (10)
  - Flushing [Unknown]
  - Abdominal pain [Recovering/Resolving]
  - Skin oedema [Unknown]
  - Colitis ulcerative [Unknown]
  - Diarrhoea haemorrhagic [Recovering/Resolving]
  - Type I hypersensitivity [Unknown]
  - Staphylococcal infection [Recovering/Resolving]
  - Papule [Unknown]
  - Drug eruption [Unknown]
  - Erythema nodosum [Unknown]

NARRATIVE: CASE EVENT DATE: 201705
